FAERS Safety Report 11320816 (Version 1)
Quarter: 2015Q3

REPORT INFORMATION
  Report Type: Spontaneous
  Country: US (occurrence: US)
  Receive Date: 20150729
  Receipt Date: 20150729
  Transmission Date: 20151125
  Serious: No
  Sender: FDA-Public Use
  Company Number: US-MYLANLABS-2014S1014614

PATIENT
  Age: 57 Year
  Sex: Female

DRUGS (1)
  1. CLONIDINE HYDROCHLORIDE TABLETS USP [Suspect]
     Active Substance: CLONIDINE HYDROCHLORIDE
     Indication: BLOOD PRESSURE INCREASED
     Dosage: .2 MG,BID
     Route: 048
     Dates: start: 20090305, end: 200905

REACTIONS (7)
  - Dry mouth [Recovered/Resolved]
  - Hypoacusis [Recovered/Resolved]
  - Blood pressure fluctuation [Recovered/Resolved]
  - Unevaluable event [Recovered/Resolved]
  - Insomnia [Recovered/Resolved]
  - Tremor [Recovered/Resolved]
  - Cyanosis [Recovered/Resolved]

NARRATIVE: CASE EVENT DATE: 200903
